FAERS Safety Report 9343849 (Version 2)
Quarter: 2013Q2

REPORT INFORMATION
  Report Type: Spontaneous
  Country: ES (occurrence: None)
  Receive Date: 20130610
  Receipt Date: 20130624
  Transmission Date: 20140414
  Serious: Yes (Death, Hospitalization, Other)
  Sender: FDA-Public Use
  Company Number: 2013P1006704

PATIENT
  Age: 59 Year
  Sex: Female

DRUGS (1)
  1. CHLOROQUINE [Suspect]
     Indication: CUTANEOUS LUPUS ERYTHEMATOSUS

REACTIONS (6)
  - Cardiotoxicity [None]
  - Conduction disorder [None]
  - Cardiac failure [None]
  - Ventricular hypertrophy [None]
  - Cardiac disorder [None]
  - Arrhythmia [None]
